FAERS Safety Report 23148499 (Version 3)
Quarter: 2024Q1

REPORT INFORMATION
  Report Type: Spontaneous
  Country: CA (occurrence: None)
  Receive Date: 20231106
  Receipt Date: 20240129
  Transmission Date: 20240410
  Serious: Yes (Other)
  Sender: FDA-Public Use
  Company Number: CA-PFIZER INC-202300350423

PATIENT
  Age: 61 Year
  Sex: Female

DRUGS (7)
  1. METHOTREXATE [Suspect]
     Active Substance: METHOTREXATE
     Indication: Ankylosing spondylitis
  2. METHOTREXATE [Suspect]
     Active Substance: METHOTREXATE
     Dates: start: 201903
  3. SULFASALAZINE [Suspect]
     Active Substance: SULFASALAZINE
     Indication: Ankylosing spondylitis
  4. SULFASALAZINE [Suspect]
     Active Substance: SULFASALAZINE
     Dosage: 1 DF, (DOSAGE INFO: 1G Q AM AND 500 MG Q PMSTATUS)
     Dates: start: 201908
  5. NAPROXEN [Concomitant]
     Active Substance: NAPROXEN
     Dosage: AS NEEDED
  6. TRAZODONE [Concomitant]
     Active Substance: TRAZODONE HYDROCHLORIDE
  7. CELECOXIB [Concomitant]
     Active Substance: CELECOXIB
     Dates: start: 20231123

REACTIONS (5)
  - Meniscus injury [Unknown]
  - Drug ineffective for unapproved indication [Unknown]
  - Product use in unapproved indication [Unknown]
  - Ankylosing spondylitis [Unknown]
  - Impaired healing [Unknown]
